FAERS Safety Report 5243582-2 (Version None)
Quarter: 2007Q1

REPORT INFORMATION
  Report Type: 
  Country: None (occurrence: None)
  Receive Date: 20070220
  Receipt Date: 20070220
  Transmission Date: 20070707
  Serious: Yes (Other)
  Sender: FDA-Public Use
  Company Number: None

PATIENT
  Age: 34 Year
  Sex: Female
  Weight: 99.7913 kg

DRUGS (1)
  1. ZICAM      ZINCUM GLUCONIUM 2X     MATRIXX INITIATIVES [Suspect]
     Indication: EXPOSURE TO COMMUNICABLE DISEASE
     Dosage: 2X  1 SPRAY  NASAL
     Route: 045
     Dates: start: 20010120, end: 20010120

REACTIONS (4)
  - AGEUSIA [None]
  - ANOSMIA [None]
  - APPLICATION SITE IRRITATION [None]
  - PAIN [None]
